FAERS Safety Report 6713022-2 (Version None)
Quarter: 2010Q2

REPORT INFORMATION
  Report Type: 
  Country: None (occurrence: None)
  Receive Date: 20100430
  Receipt Date: 20100401
  Transmission Date: 20101027
  Serious: No
  Sender: FDA-Public Use
  Company Number: 2010UF0080

PATIENT
  Age: 4 Year
  Sex: Female

DRUGS (1)
  1. ULESFIA [Suspect]
     Indication: LICE INFESTATION
     Dosage: 1 BOTTLE, WEEKLY FOR TWO WEEKS
     Dates: start: 20100331, end: 20100407

REACTIONS (1)
  - VOMITING [None]
